FAERS Safety Report 4446046-9 (Version None)
Quarter: 2004Q3

REPORT INFORMATION
  Report Type: 
  Country: None (occurrence: None)
  Receive Date: 20040910
  Receipt Date: 20040902
  Transmission Date: 20050211
  Serious: Yes (Other)
  Sender: FDA-Public Use
  Company Number: GB-GLAXOSMITHKLINE-B0344255A

PATIENT
  Age: 49 Year
  Sex: Female
  Weight: 83.6 kg

DRUGS (7)
  1. SEROXAT [Suspect]
     Indication: DEPRESSION
     Dosage: 40MG PER DAY
     Route: 048
     Dates: start: 19980301, end: 20040301
  2. METHOTREXATE [Concomitant]
     Indication: RHEUMATOID ARTHRITIS
     Dosage: 22.5MG WEEKLY
     Route: 048
  3. HYDROCORTISONE [Concomitant]
     Indication: ADRENOCORTICAL INSUFFICIENCY CHRONIC
     Route: 048
     Dates: start: 19880101
  4. FLUDROCORTISONE ACETATE [Concomitant]
     Indication: ADRENOCORTICAL INSUFFICIENCY CHRONIC
     Route: 048
     Dates: start: 19880101
  5. THYROXINE [Concomitant]
     Indication: HYPOTHYROIDISM
     Dosage: 100MCG PER DAY
     Route: 048
     Dates: start: 19880101
  6. CELECOXIB [Concomitant]
     Indication: RHEUMATOID ARTHRITIS
     Route: 048
  7. SULFASALAZINE [Concomitant]
     Indication: RHEUMATOID ARTHRITIS
     Route: 048
     Dates: start: 20010101

REACTIONS (6)
  - ANXIETY [None]
  - CRYING [None]
  - DRUG WITHDRAWAL SYNDROME [None]
  - NIGHTMARE [None]
  - PSYCHIATRIC SYMPTOM [None]
  - SUICIDAL IDEATION [None]
